FAERS Safety Report 20422933 (Version 1)
Quarter: 2022Q1

REPORT INFORMATION
  Report Type: Spontaneous
  Country: US (occurrence: US)
  Receive Date: 20220203
  Receipt Date: 20220203
  Transmission Date: 20220423
  Serious: Yes (Other)
  Sender: FDA-Public Use
  Company Number: US-PFIZER INC-2018521337

PATIENT
  Age: 73 Year
  Sex: Male

DRUGS (1)
  1. RAPAMUNE [Suspect]
     Active Substance: SIROLIMUS
     Indication: Heart transplant
     Dosage: 2 MG, 1X/DAY(TAKE 2MG TOTAL (1 TABLET) BY MOUTH DAILY)
     Route: 048

REACTIONS (4)
  - Acute kidney injury [Unknown]
  - Renal impairment [Recovering/Resolving]
  - Hernia repair [Unknown]
  - Off label use [Unknown]
